FAERS Safety Report 21577606 (Version 1)
Quarter: 2022Q4

REPORT INFORMATION
  Report Type: Spontaneous
  Country: US (occurrence: None)
  Receive Date: 20221109
  Receipt Date: 20221109
  Transmission Date: 20230113
  Serious: Yes (Other)
  Sender: FDA-Public Use
  Company Number: None

PATIENT
  Age: 27 Year
  Sex: Female
  Weight: 47.25 kg

DRUGS (1)
  1. BARE REPUBLIC CLEARSCREEN SPF 30 [Suspect]
     Active Substance: AVOBENZONE\HOMOSALATE\OCTISALATE\OCTOCRYLENE
     Indication: Prophylaxis against solar radiation
     Dosage: OTHER STRENGTH : SPF;?OTHER FREQUENCY : AS NEEDED;?
     Route: 061
     Dates: start: 20221109, end: 20221109

REACTIONS (5)
  - Ocular discomfort [None]
  - Eye swelling [None]
  - Hypersensitivity [None]
  - Accidental exposure to product [None]
  - Allergic reaction to excipient [None]

NARRATIVE: CASE EVENT DATE: 20221109
